FAERS Safety Report 4821599-7 (Version None)
Quarter: 2005Q4

REPORT INFORMATION
  Report Type: 
  Country: None (occurrence: None)
  Receive Date: 20051103
  Receipt Date: 20051103
  Transmission Date: 20060501
  Serious: No
  Sender: FDA-Public Use
  Company Number: None

PATIENT
  Age: 23 Year
  Sex: Male
  Weight: 82.1011 kg

DRUGS (4)
  1. PREVACID [Suspect]
     Indication: DYSPEPSIA
     Dosage: 30 MG QD PO
     Route: 048
     Dates: start: 20050829
  2. PREVACID [Suspect]
     Indication: GASTROOESOPHAGEAL REFLUX DISEASE
     Dosage: 30 MG QD PO
     Route: 048
     Dates: start: 20050829
  3. PREVACID [Suspect]
     Indication: DYSPEPSIA
     Dosage: 30 MG QD PO
     Route: 048
     Dates: start: 20051026
  4. PREVACID [Suspect]
     Indication: GASTROOESOPHAGEAL REFLUX DISEASE
     Dosage: 30 MG QD PO
     Route: 048
     Dates: start: 20051026

REACTIONS (1)
  - PRURITUS [None]
